FAERS Safety Report 4478409-X (Version None)
Quarter: 2004Q4

REPORT INFORMATION
  Report Type: 
  Country: None (occurrence: None)
  Receive Date: 20041019
  Receipt Date: 20040920
  Transmission Date: 20050328
  Serious: Yes (Other)
  Sender: FDA-Public Use
  Company Number: 200419615GDDC

PATIENT
  Age: 46 Year
  Sex: Female

DRUGS (5)
  1. LEFLUNOMIDE [Suspect]
     Indication: RHEUMATOID ARTHRITIS
     Route: 048
     Dates: start: 20040621
  2. LEVOTHYROX [Concomitant]
     Route: 048
     Dates: start: 19970101
  3. BECLOMETHASONE DIPROPIONATE [Concomitant]
  4. SALBUTAMOL [Concomitant]
     Dosage: DOSE: UNK
  5. CODEINE PHOS [Concomitant]
     Dates: start: 20040501

REACTIONS (6)
  - ARTHRALGIA [None]
  - FEELING COLD [None]
  - PAIN IN EXTREMITY [None]
  - PARAESTHESIA [None]
  - TENDON DISORDER [None]
  - VASCULITIS [None]
